FAERS Safety Report 4697872-2 (Version None)
Quarter: 2005Q2

REPORT INFORMATION
  Report Type: 
  Country: None (occurrence: None)
  Receive Date: 20050621
  Receipt Date: 20050621
  Transmission Date: 20051028
  Serious: Yes (Other)
  Sender: FDA-Public Use
  Company Number: None

PATIENT
  Sex: Male
  Weight: 56.6 kg

DRUGS (3)
  1. FLUOROURACIL [Suspect]
     Indication: ADENOCARCINOMA
     Dosage: 200 MG/M2/DAY CONTINUOUS INFUSION WITH RT
     Dates: start: 20050404
  2. FLUOROURACIL [Suspect]
     Indication: GASTROOESOPHAGEAL CANCER
     Dosage: 200 MG/M2/DAY CONTINUOUS INFUSION WITH RT
     Dates: start: 20050404
  3. RADIATION [Suspect]

REACTIONS (5)
  - DYSPHAGIA [None]
  - NAUSEA [None]
  - ORAL INTAKE REDUCED [None]
  - STOMATITIS [None]
  - WEIGHT FLUCTUATION [None]
